FAERS Safety Report 8543081-6 (Version None)
Quarter: 2012Q3

REPORT INFORMATION
  Report Type: 
  Country: None (occurrence: None)
  Receive Date: 20120727
  Receipt Date: 20110630
  Transmission Date: 20120928
  Serious: No
  Sender: FDA-Public Use
  Company Number: US-MYLANLABS-2011S1013895

PATIENT
  Sex: Female

DRUGS (2)
  1. LEVOTHYROXINE SODIUM [Suspect]
     Dosage: 2 DAYS/WEEK
     Route: 048
     Dates: start: 20110601
  2. LEVOTHYROXINE SODIUM [Suspect]
     Indication: HYPOTHYROIDISM
     Dosage: 5 DAYS/WEEK
     Route: 048
     Dates: start: 20110601

REACTIONS (1)
  - SENSATION OF FOREIGN BODY [None]
